FAERS Safety Report 18869705 (Version 3)
Quarter: 2021Q1

REPORT INFORMATION
  Report Type: Other
  Country: US (occurrence: US)
  Receive Date: 20210209
  Receipt Date: 20210311
  Transmission Date: 20210420
  Serious: Yes (Death, Hospitalization)
  Sender: FDA-Public Use
  Company Number: US-ROCHE-2763382

PATIENT
  Sex: Male

DRUGS (3)
  1. TYSABRI [Concomitant]
     Active Substance: NATALIZUMAB
     Dosage: 115 DOSES
  2. OCREVUS [Suspect]
     Active Substance: OCRELIZUMAB
     Indication: MULTIPLE SCLEROSIS
     Dosage: ON 13/OCT/2020, HE RECEIVED LAST INFUSION OF OCRELIZUMAB, 7 CYCLES?ON 24/OCT/2017,10/APR/2018, 19/OC
     Route: 042
     Dates: start: 20171010
  3. ATORVASTATIN [Concomitant]
     Active Substance: ATORVASTATIN

REACTIONS (1)
  - COVID-19 [Fatal]
